FAERS Safety Report 21180827 (Version 1)
Quarter: 2022Q3

REPORT INFORMATION
  Report Type: Spontaneous
  Country: FR (occurrence: None)
  Receive Date: 20220806
  Receipt Date: 20220806
  Transmission Date: 20221027
  Serious: Yes (Hospitalization)
  Sender: FDA-Public Use
  Company Number: 2022A268854

PATIENT
  Age: 36 Year
  Sex: Male

DRUGS (2)
  1. QUETIAPINE [Suspect]
     Active Substance: QUETIAPINE
     Route: 065
  2. DIMETHYLTRYPTAMINE [Suspect]
     Active Substance: DIMETHYLTRYPTAMINE
     Dosage: 50MG/J
     Route: 065

REACTIONS (2)
  - Depressed level of consciousness [Recovered/Resolved]
  - Psychiatric symptom [Recovering/Resolving]
